FAERS Safety Report 5513029-7 (Version None)
Quarter: 2007Q4

REPORT INFORMATION
  Report Type: 
  Country: None (occurrence: None)
  Receive Date: 20071108
  Receipt Date: 20071029
  Transmission Date: 20080405
  Serious: Yes (Other)
  Sender: FDA-Public Use
  Company Number: 2007333374

PATIENT
  Age: 67 Year
  Sex: Female

DRUGS (1)
  1. ROGAINE [Suspect]
     Dosage: TOPICAL
     Route: 061
     Dates: start: 20070818, end: 20071027

REACTIONS (3)
  - ANGINA PECTORIS [None]
  - MUSCLE SPASMS [None]
  - PERIPHERAL COLDNESS [None]
